FAERS Safety Report 18299558 (Version 5)
Quarter: 2021Q2

REPORT INFORMATION
  Report Type: Spontaneous
  Country: JP (occurrence: JP)
  Receive Date: 20200923
  Receipt Date: 20210629
  Transmission Date: 20210717
  Serious: Yes (Hospitalization, Other)
  Sender: FDA-Public Use
  Company Number: JP-GLAXOSMITHKLINE-JP2020JPN188231

PATIENT
  Age: 47 Year
  Sex: Male
  Weight: 85 kg

DRUGS (62)
  1. BENLYSTA [Suspect]
     Active Substance: BELIMUMAB
     Dosage: 800 MG, 1D
     Route: 041
     Dates: start: 20190108, end: 20190108
  2. PREDONINE [Concomitant]
     Active Substance: PREDNISOLONE
     Indication: SYSTEMIC LUPUS ERYTHEMATOSUS
     Dosage: UNK
     Route: 048
  3. PREDONINE [Concomitant]
     Active Substance: PREDNISOLONE
     Dosage: 25 MG, 1D
     Route: 048
     Dates: start: 20180713, end: 20180809
  4. PREDONINE [Concomitant]
     Active Substance: PREDNISOLONE
     Dosage: 25 MG, 1D
     Route: 048
     Dates: start: 20181009, end: 20181011
  5. PREDONINE [Concomitant]
     Active Substance: PREDNISOLONE
     Dosage: 5 MG, BID
  6. MEROPENEM. [Concomitant]
     Active Substance: MEROPENEM
     Indication: PNEUMOCYSTIS JIROVECII PNEUMONIA
     Dosage: UNK
     Route: 041
  7. NOVORAPID [Concomitant]
     Active Substance: INSULIN ASPART
     Dosage: BEFORE BREAKFAST 12 IU, BEFORE LUNCH 8 IU, BEFORE DINNER 10 IU, TID
  8. TENELIA [Concomitant]
     Active Substance: TENELIGLIPTIN
     Dosage: UNK
  9. RABEPRAZOLE SODIUM. [Concomitant]
     Active Substance: RABEPRAZOLE SODIUM
     Dosage: UNK
  10. PERSANTINE [Concomitant]
     Active Substance: DIPYRIDAMOLE
     Indication: SYSTEMIC LUPUS ERYTHEMATOSUS
     Dosage: 100 MG, TID
  11. NOVOLIN R [Concomitant]
     Active Substance: INSULIN HUMAN
     Dosage: UNK
  12. TRAZENTA TABLETS [Concomitant]
     Dosage: 5 MG, QD
  13. BENLYSTA [Suspect]
     Active Substance: BELIMUMAB
     Dosage: 800 MG, Z
     Route: 041
     Dates: start: 20180420
  14. BENLYSTA [Suspect]
     Active Substance: BELIMUMAB
     Dosage: 800 MG/KG, Z
     Route: 041
     Dates: start: 20180907, end: 20180907
  15. BENLYSTA [Suspect]
     Active Substance: BELIMUMAB
     Dosage: 800 MG
     Route: 041
     Dates: start: 20181106, end: 20181204
  16. BENLYSTA [Suspect]
     Active Substance: BELIMUMAB
     Dosage: 800 MG
     Route: 041
     Dates: start: 20190209, end: 20190221
  17. BENLYSTA [Suspect]
     Active Substance: BELIMUMAB
     Dosage: 800 MG, PER 4 WEEKS
  18. PREDONINE [Concomitant]
     Active Substance: PREDNISOLONE
     Dosage: 60 MG, 1D
     Route: 048
     Dates: start: 20180301, end: 20180307
  19. AMLODIPINE BESILATE [Concomitant]
     Active Substance: AMLODIPINE BESYLATE
     Dosage: 5 MG, QD
  20. BAYASPIRIN [Concomitant]
     Active Substance: ASPIRIN
     Dosage: UNK
  21. SENNOSIDE [Concomitant]
     Active Substance: SENNOSIDES
     Dosage: UNK
  22. CICLOSPORIN CAPSULES [Concomitant]
     Dosage: 150 MG, BID
  23. BENLYSTA [Suspect]
     Active Substance: BELIMUMAB
     Indication: SYSTEMIC LUPUS ERYTHEMATOSUS
     Dosage: 800 MG, Z
     Route: 041
     Dates: start: 20180223, end: 20180323
  24. FUROSEMIDE TABLETS [Concomitant]
     Active Substance: FUROSEMIDE
     Indication: SYSTEMIC LUPUS ERYTHEMATOSUS
     Dosage: 20 MG, QD
     Route: 048
  25. PREDONINE [Concomitant]
     Active Substance: PREDNISOLONE
     Dosage: 40 MG, 1D
     Route: 048
     Dates: start: 20180315, end: 20180328
  26. PREDONINE [Concomitant]
     Active Substance: PREDNISOLONE
     Dosage: 35 MG, 1D
     Route: 048
     Dates: start: 20190220
  27. PROGRAF [Concomitant]
     Active Substance: TACROLIMUS
     Indication: SYSTEMIC LUPUS ERYTHEMATOSUS
     Dosage: UNK
     Route: 048
  28. AZELNIDIPINE [Concomitant]
     Active Substance: AZELNIDIPINE
     Dosage: UNK
  29. POLAPREZINC OD TABLET [Concomitant]
     Dosage: 75 MG, BID
  30. FERROMIA TABLETS [Concomitant]
     Dosage: 50 MG, QD
  31. AZUNOL GARGLE LIQUID [Concomitant]
     Active Substance: SODIUM GUALENATE MONOHYDRATE
     Dosage: UNK 3?4 TIMES A DAY
  32. PREDONINE [Concomitant]
     Active Substance: PREDNISOLONE
     Dosage: 40 MG, 1D
     Route: 041
     Dates: start: 20180329, end: 20180329
  33. PREDONINE [Concomitant]
     Active Substance: PREDNISOLONE
     Dosage: 22.5 MG, 1D
     Route: 048
     Dates: start: 20180810, end: 20180906
  34. CARDENALIN OD TABLETS [Concomitant]
     Dosage: 2 MG, QD
  35. AZILVA [Concomitant]
     Active Substance: AZILSARTAN KAMEDOXOMIL
     Dosage: UNK
  36. ZACRAS COMBINATION TABLETS HD [Concomitant]
     Active Substance: AMLODIPINE BESYLATE\AZILSARTAN
     Dosage: 1 DF, QD
  37. PREDONINE [Concomitant]
     Active Substance: PREDNISOLONE
     Dosage: 50 MG, 1D
     Route: 048
     Dates: start: 20180308, end: 20180314
  38. PREDONINE [Concomitant]
     Active Substance: PREDNISOLONE
     Dosage: 60 MG, 1D
     Route: 041
     Dates: start: 20180330, end: 20180402
  39. PREDONINE [Concomitant]
     Active Substance: PREDNISOLONE
     Dosage: 30 MG, 1D
     Route: 048
     Dates: start: 20180531, end: 20180712
  40. PREDONINE [Concomitant]
     Active Substance: PREDNISOLONE
     Dosage: 40 MG, 1D
     Route: 048
     Dates: start: 20190207, end: 20190219
  41. PLAQUENIL [Concomitant]
     Active Substance: HYDROXYCHLOROQUINE SULFATE
     Indication: SYSTEMIC LUPUS ERYTHEMATOSUS
     Dosage: UNK
     Route: 048
  42. VALIXA (VALGANCICLOVIR HYDROCHLORIDE) [Concomitant]
     Dosage: UNK
  43. BAKTAR COMBINATION TABLETS [Concomitant]
     Active Substance: SULFAMETHOXAZOLE\TRIMETHOPRIM
     Indication: PNEUMOCYSTIS JIROVECII PNEUMONIA
     Dosage: 1 DF 3 TIMES A WEEK
     Route: 048
  44. PITAVASTATIN CALCIUM [Concomitant]
     Active Substance: PITAVASTATIN CALCIUM
     Dosage: UNK
  45. CARVEDILOL. [Concomitant]
     Active Substance: CARVEDILOL
     Dosage: UNK
  46. SPIRONOLACTONE. [Concomitant]
     Active Substance: SPIRONOLACTONE
     Indication: SYSTEMIC LUPUS ERYTHEMATOSUS
     Dosage: UNK
  47. PREDONINE [Concomitant]
     Active Substance: PREDNISOLONE
     Dosage: 70 MG, 1D
     Route: 048
     Dates: start: 20180222, end: 20180228
  48. PREDONINE [Concomitant]
     Active Substance: PREDNISOLONE
     Dosage: 40 MG, 1D
     Route: 048
     Dates: start: 20180403, end: 20180530
  49. PREDONINE [Concomitant]
     Active Substance: PREDNISOLONE
     Dosage: 40 MG, 1D
     Route: 048
     Dates: start: 20181012, end: 20190127
  50. PREDONINE [Concomitant]
     Active Substance: PREDNISOLONE
     Dosage: 60 MG, 1D
     Route: 048
     Dates: start: 20190202, end: 20190206
  51. CELLCEPT [Concomitant]
     Active Substance: MYCOPHENOLATE MOFETIL\MYCOPHENOLATE MOFETIL HYDROCHLORIDE
     Indication: SYSTEMIC LUPUS ERYTHEMATOSUS
     Dosage: UNK
     Route: 048
  52. PREDONINE [Concomitant]
     Active Substance: PREDNISOLONE
     Dosage: 20 MG, 1D
     Route: 048
     Dates: start: 20180907, end: 20181008
  53. DAIKENCHUTO [Concomitant]
     Active Substance: HERBALS
     Dosage: UNK
  54. BONVIVA (IBANDRONATE SODIUM MONOHYDRATE) [Concomitant]
     Indication: OSTEOPOROSIS PROPHYLAXIS
     Dosage: UNK
  55. LIPITOR TABLETS [Concomitant]
     Dosage: 5 MG, QD
  56. MEROPENEM. [Concomitant]
     Active Substance: MEROPENEM
     Indication: PANCREATITIS ACUTE
     Dosage: 1 G, TID
     Route: 041
     Dates: start: 20180330, end: 20180409
  57. BONALON ORAL JELLY [Concomitant]
     Indication: OSTEOPOROSIS PROPHYLAXIS
     Dosage: 35 MG, WE
     Route: 048
  58. BAKTAR COMBINATION TABLETS [Concomitant]
     Active Substance: SULFAMETHOXAZOLE\TRIMETHOPRIM
     Indication: ANTIFUNGAL PROPHYLAXIS
     Dosage: 1 DF, WE
  59. SODIUM PICOSULFATE HYDRATE [Concomitant]
     Active Substance: SODIUM PICOSULFATE
     Dosage: UNK
  60. INSULIN GLARGINE BS INJECTION [Concomitant]
     Dosage: BEFORE BEDTIME 30 IU, QD
  61. HUMALOG [Concomitant]
     Active Substance: INSULIN LISPRO
     Dosage: UNK
  62. FEBURIC TABLETS [Concomitant]
     Active Substance: FEBUXOSTAT
     Dosage: 40 MG, QD

REACTIONS (5)
  - Prescribed underdose [Unknown]
  - Angina unstable [Recovering/Resolving]
  - Pancreatitis acute [Unknown]
  - Gastroenteritis [Recovered/Resolved]
  - Off label use [Unknown]

NARRATIVE: CASE EVENT DATE: 20200411
